FAERS Safety Report 23996038 (Version 8)
Quarter: 2024Q4

REPORT INFORMATION
  Report Type: Spontaneous
  Country: US (occurrence: US)
  Receive Date: 20240620
  Receipt Date: 20241120
  Transmission Date: 20250115
  Serious: Yes (Other)
  Sender: PFIZER
  Company Number: US-PFIZER INC-PV202400074718

PATIENT
  Age: 65 Year
  Sex: Female

DRUGS (3)
  1. IBRANCE [Suspect]
     Active Substance: PALBOCICLIB
     Indication: Breast cancer female
     Dosage: 125 MG, CYCLIC (DAILY, TAKE 1 TAB 2 WEEKS ON, 2 WEEKS OFF 5/8)
     Route: 048
     Dates: start: 20240417, end: 202404
  2. IBRANCE [Suspect]
     Active Substance: PALBOCICLIB
     Dosage: 125 MG, CYCLIC (DAILY, TAKE 1 TAB 2 WEEKS ON, 2 WEEKS OFF 5/8)
     Route: 048
  3. IBRANCE [Suspect]
     Active Substance: PALBOCICLIB
     Dosage: 100 MG, CYCLIC (DAILY, ON DAYS 1-21, THEN OFF 7 DAYS)
     Route: 048
     Dates: start: 20240605

REACTIONS (4)
  - Pneumonia [Unknown]
  - Neutropenia [Unknown]
  - White blood cell count decreased [Not Recovered/Not Resolved]
  - Full blood count decreased [Unknown]

NARRATIVE: CASE EVENT DATE: 20240401
